FAERS Safety Report 4391275-6 (Version None)
Quarter: 2004Q2

REPORT INFORMATION
  Report Type: 
  Country: None (occurrence: None)
  Receive Date: 20040621
  Receipt Date: 20031216
  Transmission Date: 20050107
  Serious: Yes (Hospitalization, Other)
  Sender: FDA-Public Use
  Company Number: USA-2003-0006189

PATIENT
  Age: 26 Year
  Sex: Female
  Weight: 48.5 kg

DRUGS (4)
  1. OXYCONTIN [Suspect]
     Indication: PAIN
     Dosage: 20 MG
  2. METHADONE HCL [Suspect]
     Indication: PAIN
  3. VALIUM [Suspect]
  4. EFFEXOR [Concomitant]

REACTIONS (20)
  - ABDOMINAL DISCOMFORT [None]
  - AGITATION [None]
  - ANXIETY [None]
  - ASTHENIA [None]
  - DEPRESSION [None]
  - DIZZINESS [None]
  - DRUG DEPENDENCE [None]
  - DRUG WITHDRAWAL SYNDROME [None]
  - HEADACHE [None]
  - HEART RATE INCREASED [None]
  - INSOMNIA [None]
  - INTENTIONAL OVERDOSE [None]
  - LIMB INJURY [None]
  - MUSCLE CRAMP [None]
  - NAUSEA [None]
  - PAIN [None]
  - PSYCHIATRIC SYMPTOM [None]
  - TREMOR [None]
  - URINARY HESITATION [None]
  - VITREOUS FLOATERS [None]
